FAERS Safety Report 4195008 (Version 11)
Quarter: 2020Q3

REPORT INFORMATION
  Report Type: Report from Study
  Country: US (occurrence: US)
  Receive Date: 20040824
  Receipt Date: 20060331
  Transmission Date: 20201104
  Serious: Yes (Death, Life-Threatening, Hospitalization, Disabling)
  Sender: FDA-Public Use
  Company Number: US-JNJFOC-20040805603

PATIENT
  Age: 72 Year
  Sex: Male

DRUGS (14)
  1. REOPRO [Suspect]
     Active Substance: ABCIXIMAB
     Route: 042
  2. CETACAINE [Concomitant]
     Route: 048
  3. ZOSYN [Concomitant]
     Active Substance: PIPERACILLIN SODIUM\TAZOBACTAM SODIUM
     Route: 042
  4. MIDAZOLAM HYDROCHLORIDE. [Concomitant]
     Active Substance: MIDAZOLAM HYDROCHLORIDE
     Dosage: 0.5?2.0 MG
     Route: 042
  5. PEPCID [Concomitant]
     Active Substance: FAMOTIDINE
     Route: 042
  6. FUROSEMIDE. [Concomitant]
     Active Substance: FUROSEMIDE
     Route: 042
  7. CETACAINE [Concomitant]
     Route: 048
  8. ALBUMIN (HUMAN) [Concomitant]
     Active Substance: ALBUMIN HUMAN
     Route: 042
  9. BENZALKONIUM CHLORIDE. [Concomitant]
     Active Substance: BENZALKONIUM CHLORIDE
     Route: 048
  10. REOPRO [Suspect]
     Active Substance: ABCIXIMAB
     Route: 042
  11. TETRACAINE HYDROCHLORIDE. [Concomitant]
     Active Substance: TETRACAINE HYDROCHLORIDE
     Route: 048
  12. BENZOCAINE. [Concomitant]
     Active Substance: BENZOCAINE
     Dosage: SPRAY
     Route: 048
  13. ZOSYN [Concomitant]
     Active Substance: PIPERACILLIN SODIUM\TAZOBACTAM SODIUM
     Route: 042
  14. POTASSIUM CHLORIDE. [Concomitant]
     Active Substance: POTASSIUM CHLORIDE
     Route: 042

REACTIONS (8)
  - Acute respiratory distress syndrome [Fatal]
  - Haemorrhage intracranial [Not Recovered/Not Resolved]
  - Hypoxia [Recovered/Resolved]
  - Pneumonia aspiration [Fatal]
  - Anaemia [Recovered/Resolved]
  - Gastrointestinal haemorrhage [Unknown]
  - Brain oedema [Not Recovered/Not Resolved]
  - Epistaxis [Recovered/Resolved]

NARRATIVE: CASE EVENT DATE: 20040809
